FAERS Safety Report 7371974-4 (Version None)
Quarter: 2011Q1

REPORT INFORMATION
  Report Type: 
  Country: None (occurrence: None)
  Receive Date: 20110324
  Receipt Date: 20110314
  Transmission Date: 20110831
  Serious: Yes (Hospitalization, Disabling)
  Sender: FDA-Public Use
  Company Number: JP-AMGEN-JPNCT2011013094

PATIENT
  Age: 66 Year
  Sex: Male
  Weight: 61 kg

DRUGS (13)
  1. BROMELAINS [Concomitant]
     Route: 062
  2. HIRUDOID SOFT [Concomitant]
     Route: 062
  3. KYTRIL [Concomitant]
     Route: 041
  4. CALBLOCK [Concomitant]
     Route: 048
  5. TSUMURA SHAKUYAKUKANZOUTOU [Concomitant]
     Route: 048
  6. RINDERON-VG [Concomitant]
     Route: 062
  7. ALPROSTADIL [Concomitant]
     Route: 062
  8. ALDACTONE [Concomitant]
     Route: 048
  9. PANITUMUMAB [Suspect]
     Indication: COLORECTAL CANCER
     Dosage: 400 MG, Q2WK
     Route: 041
     Dates: start: 20110104, end: 20110117
  10. DEXART [Concomitant]
     Route: 041
  11. HEPARIN NA LOCK [Concomitant]
     Route: 042
  12. OLMETEC [Concomitant]
     Route: 048
  13. LASIX [Concomitant]
     Route: 048

REACTIONS (3)
  - BRAIN OEDEMA [None]
  - CEREBRAL INFARCTION [None]
  - HAEMORRHAGIC CEREBRAL INFARCTION [None]
